FAERS Safety Report 11911995 (Version 2)
Quarter: 2016Q1

REPORT INFORMATION
  Report Type: Other
  Country: GB (occurrence: US)
  Receive Date: 20160112
  Receipt Date: 20160129
  Transmission Date: 20160526
  Serious: Yes (Disabling, Other)
  Sender: FDA-Public Use
  Company Number: GB-CLARIS PHARMASERVICES-1046433

PATIENT
  Age: 55 Year
  Sex: Female

DRUGS (1)
  1. LEVOFLOXACIN. [Suspect]
     Active Substance: LEVOFLOXACIN
     Indication: URINARY TRACT INFECTION
     Route: 065

REACTIONS (12)
  - Fatigue [None]
  - Mitochondrial myopathy acquired [None]
  - Neuropathy peripheral [None]
  - Pain [None]
  - Mental disorder [None]
  - Amnesia [None]
  - Neurotoxicity [None]
  - Sensory disturbance [None]
  - Affective disorder [None]
  - Confusional state [None]
  - Muscle disorder [None]
  - Tendon disorder [None]
